FAERS Safety Report 8785240 (Version 1)
Quarter: 2012Q4

REPORT INFORMATION
  Report Type: 
  Country: US (occurrence: US)
  Receive Date: 20120914
  Receipt Date: 20120914
  Transmission Date: 20130627
  Serious: Yes (Hospitalization)
  Sender: FDA-Public Use
  Company Number: US-BAYER-2012-095573

PATIENT
  Age: 39 Year
  Sex: Female
  Weight: 131 kg

DRUGS (7)
  1. YASMIN [Suspect]
  2. ADVIL [Concomitant]
     Dosage: UNK
     Route: 048
     Dates: start: 20070821
  3. LORTAB [Concomitant]
     Indication: PAIN
     Dosage: 5 mg Every 6 as needed
     Route: 048
     Dates: start: 20070829
  4. ATACAND [Concomitant]
     Dosage: 32-12.5 mg
     Route: 048
     Dates: start: 20070724
  5. ATACAND [Concomitant]
     Dosage: UNK
     Route: 048
     Dates: start: 20070928
  6. ATACAND [Concomitant]
     Dosage: UNK
     Route: 048
     Dates: start: 20070625, end: 20070923
  7. DARVOCET-N [Concomitant]
     Indication: PAIN
     Dosage: Darvocet N-100, q (interpreted as every) 4-6 h (interpreted as hours) as needed

REACTIONS (1)
  - Deep vein thrombosis [None]
